FAERS Safety Report 21366103 (Version 4)
Quarter: 2022Q4

REPORT INFORMATION
  Report Type: Spontaneous
  Country: US (occurrence: US)
  Receive Date: 20220922
  Receipt Date: 20221202
  Transmission Date: 20230113
  Serious: No
  Sender: FDA-Public Use
  Company Number: US-NEUROCRINE BIOSCIENCES INC.-2022NBI06062

PATIENT

DRUGS (4)
  1. INGREZZA [Suspect]
     Active Substance: VALBENAZINE
     Indication: Tardive dyskinesia
     Dosage: 40 MILLIGRAM, DAILY
     Route: 048
     Dates: end: 20220826
  2. HALDOL [Concomitant]
     Active Substance: HALOPERIDOL
     Indication: Affective disorder
     Dosage: 5 MILLIGRAM, BID
     Route: 048
     Dates: start: 202205, end: 20220826
  3. DIPHENHYDRAMINE [Concomitant]
     Active Substance: DIPHENHYDRAMINE
     Indication: Anxiety
     Dosage: UNK, TID
     Route: 048
     Dates: start: 202205
  4. DOXEPIN [Concomitant]
     Active Substance: DOXEPIN
     Indication: Sleep disorder
     Dosage: 10 MILLIGRAM
     Route: 048
     Dates: start: 20220802, end: 20220826

REACTIONS (2)
  - Oral infection [Unknown]
  - Dyskinesia [Unknown]

NARRATIVE: CASE EVENT DATE: 20220801
